FAERS Safety Report 18063871 (Version 1)
Quarter: 2020Q3

REPORT INFORMATION
  Report Type: Spontaneous
  Country: GB (occurrence: GB)
  Receive Date: 20200724
  Receipt Date: 20200724
  Transmission Date: 20201103
  Serious: Yes (Hospitalization)
  Sender: FDA-Public Use
  Company Number: GB-TEVA-2020-GB-1804045

PATIENT
  Age: 74 Year
  Sex: Female

DRUGS (14)
  1. LANSOPRAZOLE. [Concomitant]
     Active Substance: LANSOPRAZOLE
     Dosage: 30 MILLIGRAM DAILY; MORNING
  2. ATORVASTATIN [Concomitant]
     Active Substance: ATORVASTATIN
     Dosage: 80 MG
  3. ADCAL?D3 [Concomitant]
     Active Substance: CALCIUM CARBONATE\CHOLECALCIFEROL
     Dosage: 1500MG/400 UNIT, MORNING AND EVENING
  4. DOCUSATE [Concomitant]
     Active Substance: DOCUSATE
     Dosage: 50MG/5ML
  5. RISPERIDONE. [Concomitant]
     Active Substance: RISPERIDONE
     Dosage: 1000 MICROGRAM
  6. NICORANDIL [Concomitant]
     Active Substance: NICORANDIL
     Dosage: 40 MG
  7. VENTOLIN [Concomitant]
     Active Substance: ALBUTEROL SULFATE
     Dosage: 200 MICROGRAM
     Route: 055
  8. CLOPIDOGREL [Suspect]
     Active Substance: CLOPIDOGREL BISULFATE
     Dosage: 75 MG
     Route: 065
  9. FOLIC ACID. [Concomitant]
     Active Substance: FOLIC ACID
     Dosage: UNIT DOSE: 5 MG
  10. MONOMIL XL [Concomitant]
     Active Substance: ISOSORBIDE MONONITRATE
     Dosage: 30 MILLIGRAM DAILY; MORNING
  11. BACLOFEN. [Concomitant]
     Active Substance: BACLOFEN
     Dosage: 5MG/5ML, WITH MEALS, UNIT DOSE: 45 ML
  12. CARBOCISTEINE [Concomitant]
     Active Substance: CARBOCYSTEINE
     Dosage: 250MG/5ML, UNIT DOSE: 15 ML
  13. MIRTAZAPINE. [Concomitant]
     Active Substance: MIRTAZAPINE
     Dosage: 45 MILLIGRAM DAILY; NIGHT
  14. FOSTAIR [Concomitant]
     Active Substance: BECLOMETHASONE\FORMOTEROL
     Dosage: PUFF, 100MCG/6MCG, UNIT DOSE: 2 DOSAGE FORMS
     Route: 055

REACTIONS (2)
  - Discoloured vomit [Unknown]
  - Upper gastrointestinal haemorrhage [Unknown]
